FAERS Safety Report 18516614 (Version 1)
Quarter: 2020Q4

REPORT INFORMATION
  Report Type: Spontaneous
  Country: US (occurrence: US)
  Receive Date: 20201117
  Receipt Date: 20201117
  Transmission Date: 20210114
  Serious: Yes (Hospitalization, Other)
  Sender: FDA-Public Use
  Company Number: None

PATIENT
  Age: 27 Year
  Sex: Female
  Weight: 37.65 kg

DRUGS (5)
  1. KEPPRA [Suspect]
     Active Substance: LEVETIRACETAM
     Dates: start: 20180413
  2. MULTIVITAMIN [Suspect]
     Active Substance: VITAMINS
     Dates: start: 20180509
  3. BENADRYL 50MG [Concomitant]
     Dates: start: 20151222
  4. LEXAPRO [Suspect]
     Active Substance: ESCITALOPRAM OXALATE
     Dates: start: 20200129
  5. ECULIZUMAB 1200MG [Suspect]
     Active Substance: ECULIZUMAB
     Indication: NEUROMYELITIS OPTICA SPECTRUM DISORDER
     Dosage: ?          OTHER ROUTE:IV?
     Route: 042
     Dates: start: 20170511

REACTIONS (4)
  - Systemic lupus erythematosus [None]
  - Suicidal ideation [None]
  - Nephritis [None]
  - Acute kidney injury [None]

NARRATIVE: CASE EVENT DATE: 20200504
